FAERS Safety Report 13263194 (Version 1)
Quarter: 2017Q1

REPORT INFORMATION
  Report Type: Spontaneous
  Country: BR (occurrence: BR)
  Receive Date: 20170223
  Receipt Date: 20170223
  Transmission Date: 20170428
  Serious: Yes (Disabling)
  Sender: FDA-Public Use
  Company Number: BR-B.I. PHARMACEUTICALS,INC./RIDGEFIELD-2017-BI-009503

PATIENT
  Age: 80 Year
  Sex: Male
  Weight: 53 kg

DRUGS (2)
  1. SALBUTAMOL [Concomitant]
     Active Substance: ALBUTEROL
     Indication: EMPHYSEMA
     Dosage: UNIT DOSE: 2; DAILY DOSE: 8
     Route: 055
     Dates: start: 2012
  2. SPIRIVA RESPIMAT [Suspect]
     Active Substance: TIOTROPIUM BROMIDE
     Indication: EMPHYSEMA
     Dosage: 2 PUFFS OF  2.5MCG
     Route: 055
     Dates: start: 201601

REACTIONS (4)
  - Weight decreased [Unknown]
  - Fatigue [Not Recovered/Not Resolved]
  - Device use error [Recovered/Resolved]
  - Lung disorder [Not Recovered/Not Resolved]

NARRATIVE: CASE EVENT DATE: 201601
